FAERS Safety Report 24427765 (Version 1)
Quarter: 2024Q4

REPORT INFORMATION
  Report Type: Spontaneous
  Country: CA (occurrence: CA)
  Receive Date: 20241011
  Receipt Date: 20241011
  Transmission Date: 20250115
  Serious: Yes (Hospitalization)
  Sender: WAYLIS
  Company Number: CA-ROCHE-10000095829

PATIENT
  Age: 7 Decade
  Sex: Female

DRUGS (2)
  1. DIAZEPAM [Suspect]
     Active Substance: DIAZEPAM
     Indication: Depression
  2. DULOXETINE [Concomitant]
     Active Substance: DULOXETINE
     Indication: Depression

REACTIONS (2)
  - Drug withdrawal convulsions [Recovered/Resolved]
  - Postictal psychosis [Recovered/Resolved]
